FAERS Safety Report 14343062 (Version 1)
Quarter: 2018Q1

REPORT INFORMATION
  Report Type: Spontaneous
  Country: US (occurrence: US)
  Receive Date: 20180102
  Receipt Date: 20180102
  Transmission Date: 20180509
  Serious: No
  Sender: FDA-Public Use
  Company Number: US-ASTRAZENECA-2017SF31769

PATIENT
  Age: 27386 Day
  Sex: Male
  Weight: 83.9 kg

DRUGS (18)
  1. SPIRIVA [Concomitant]
     Active Substance: TIOTROPIUM BROMIDE MONOHYDRATE
     Indication: EMPHYSEMA
     Route: 055
  2. PROAIR HFA [Concomitant]
     Active Substance: ALBUTEROL SULFATE
     Indication: CONDITION AGGRAVATED
     Dosage: 90 MICROGRAMS, AS REQUIRED, ONE TO TWO PUFFS AS NEEDED
     Route: 055
  3. DALIRESP [Suspect]
     Active Substance: ROFLUMILAST
     Indication: CONDITION AGGRAVATED
     Route: 048
  4. SYMBICORT [Suspect]
     Active Substance: BUDESONIDE\FORMOTEROL FUMARATE DIHYDRATE
     Indication: CHRONIC OBSTRUCTIVE PULMONARY DISEASE
     Dosage: 160/4.5 MICROGRAMS, TWO PUFFS, TWO TIMES A DAY
     Route: 055
  5. DALIRESP [Suspect]
     Active Substance: ROFLUMILAST
     Indication: PRODUCTIVE COUGH
     Route: 048
  6. DALIRESP [Suspect]
     Active Substance: ROFLUMILAST
     Indication: CHOKING
     Route: 048
  7. SPIRIVA [Concomitant]
     Active Substance: TIOTROPIUM BROMIDE MONOHYDRATE
     Indication: CONDITION AGGRAVATED
     Route: 055
  8. IPRATROPIUM SOL NEPHRON [Concomitant]
     Indication: CHRONIC OBSTRUCTIVE PULMONARY DISEASE
     Route: 055
  9. ALBUTEROL SULFATTE [Concomitant]
     Indication: PRODUCTIVE COUGH
     Dosage: 2.5 MILLIGRAMS/ 3 MILLILITRE, ONE VIAL EVERY FOUR TO SIX HOURS AS NEEDED, (NEEDS IT MORE IN THE W...
     Route: 055
  10. MONTELUKAST [Concomitant]
     Active Substance: MONTELUKAST SODIUM
     Indication: EMPHYSEMA
     Route: 048
  11. PROAIR HFA [Concomitant]
     Active Substance: ALBUTEROL SULFATE
     Indication: DYSPNOEA
     Dosage: 90 MICROGRAMS, AS REQUIRED, ONE TO TWO PUFFS AS NEEDED
     Route: 055
  12. SPIRIVA [Concomitant]
     Active Substance: TIOTROPIUM BROMIDE MONOHYDRATE
     Indication: CHRONIC OBSTRUCTIVE PULMONARY DISEASE
     Route: 055
  13. MONTELUKAST [Concomitant]
     Active Substance: MONTELUKAST SODIUM
     Indication: CHRONIC OBSTRUCTIVE PULMONARY DISEASE
     Route: 048
  14. IPRATROPIUM SOL NEPHRON [Concomitant]
     Indication: EMPHYSEMA
     Route: 055
  15. ALBUTEROL SULFATTE [Concomitant]
     Indication: CONDITION AGGRAVATED
     Dosage: 2.5 MILLIGRAMS/ 3 MILLILITRE, ONE VIAL EVERY FOUR TO SIX HOURS AS NEEDED, (NEEDS IT MORE IN THE W...
     Route: 055
  16. ALBUTEROL SULFATTE [Concomitant]
     Indication: WHEEZING
     Dosage: 2.5 MILLIGRAMS/ 3 MILLILITRE, ONE VIAL EVERY FOUR TO SIX HOURS AS NEEDED, (NEEDS IT MORE IN THE W...
     Route: 055
  17. SPIRIVA [Concomitant]
     Active Substance: TIOTROPIUM BROMIDE MONOHYDRATE
     Indication: MALAISE
     Route: 055
  18. ALBUTEROL SULFATTE [Concomitant]
     Indication: LUNG DISORDER
     Dosage: 2.5 MILLIGRAMS/ 3 MILLILITRE, ONE VIAL EVERY FOUR TO SIX HOURS AS NEEDED, (NEEDS IT MORE IN THE W...
     Route: 055

REACTIONS (12)
  - Drug dose omission [Unknown]
  - Asthenia [Unknown]
  - Product selection error [Unknown]
  - Pulmonary function test abnormal [Not Recovered/Not Resolved]
  - Productive cough [Unknown]
  - Intentional product misuse [Unknown]
  - Product use in unapproved indication [Unknown]
  - Abdominal discomfort [Unknown]
  - Dyspnoea [Unknown]
  - Choking [Unknown]
  - Off label use [Unknown]
  - Malaise [Unknown]

NARRATIVE: CASE EVENT DATE: 20171220
